FAERS Safety Report 8134716-0 (Version None)
Quarter: 2012Q1

REPORT INFORMATION
  Report Type: 
  Country: None (occurrence: None)
  Receive Date: 20120103
  Receipt Date: 20111113
  Transmission Date: 20120608
  Serious: No
  Sender: FDA-Public Use
  Company Number: AE-2011-003424

PATIENT
  Sex: Female
  Weight: 54.4316 kg

DRUGS (4)
  1. XANAX [Concomitant]
  2. INCIVEK [Suspect]
     Dosage: 2250 MG (750 MG, 3 IN 1 D), ORAL
     Route: 048
     Dates: start: 20111107
  3. RIBAVIRIN [Concomitant]
  4. PEGASYS [Concomitant]

REACTIONS (3)
  - EYE PAIN [None]
  - RASH PRURITIC [None]
  - NAUSEA [None]
